FAERS Safety Report 20489704 (Version 1)
Quarter: 2022Q1

REPORT INFORMATION
  Report Type: Spontaneous
  Country: US (occurrence: None)
  Receive Date: 20220217
  Receipt Date: 20220217
  Transmission Date: 20220423
  Serious: Yes (Death)
  Sender: FDA-Public Use
  Company Number: None

PATIENT
  Age: 24 Year
  Sex: Male

DRUGS (3)
  1. FINASTERIDE [Suspect]
     Active Substance: FINASTERIDE
  2. KETOCONAZOLE [Suspect]
     Active Substance: KETOCONAZOLE
  3. BIOTIN TAB [Concomitant]

REACTIONS (1)
  - Road traffic accident [None]
